FAERS Safety Report 12348751 (Version 1)
Quarter: 2016Q2

REPORT INFORMATION
  Report Type: Spontaneous
  Country: US (occurrence: US)
  Receive Date: 20160509
  Receipt Date: 20160509
  Transmission Date: 20160815
  Serious: No
  Sender: FDA-Public Use
  Company Number: US-PFIZER INC-2016210916

PATIENT
  Age: 58 Year
  Sex: Female
  Weight: 68 kg

DRUGS (7)
  1. GABAPENTIN. [Suspect]
     Active Substance: GABAPENTIN
     Dosage: 300 MG, 3X/DAY
     Route: 048
  2. NEURONTIN [Suspect]
     Active Substance: GABAPENTIN
     Dosage: 300 MG, 3X/DAY
  3. LISINOPRIL. [Concomitant]
     Active Substance: LISINOPRIL
     Dosage: TAKES A HALF TABLET
  4. NOVOLOG [Concomitant]
     Active Substance: INSULIN ASPART
     Indication: DIABETES MELLITUS
     Dosage: 17 IU, DAILY (12 UNITS BEFORE BREAKFAST, 5 UNITS AFTER EVERY MEAL)
  5. LISINOPRIL. [Concomitant]
     Active Substance: LISINOPRIL
     Indication: RENAL DISORDER
     Dosage: 10 MG, UNK
  6. NEURONTIN [Suspect]
     Active Substance: GABAPENTIN
     Dosage: 100 MG, 3X/DAY
  7. LANTUS [Concomitant]
     Active Substance: INSULIN GLARGINE
     Indication: DIABETES MELLITUS
     Dosage: 20 UNITS BEFORE BED

REACTIONS (8)
  - Drug ineffective for unapproved indication [Unknown]
  - Somnolence [Not Recovered/Not Resolved]
  - Peripheral coldness [Not Recovered/Not Resolved]
  - Pruritus [Recovered/Resolved]
  - Herpes zoster [Not Recovered/Not Resolved]
  - Insomnia [Not Recovered/Not Resolved]
  - Pain [Not Recovered/Not Resolved]
  - Hypoaesthesia [Not Recovered/Not Resolved]

NARRATIVE: CASE EVENT DATE: 201602
